FAERS Safety Report 16842113 (Version 2)
Quarter: 2019Q4

REPORT INFORMATION
  Report Type: Spontaneous
  Country: DE (occurrence: DE)
  Receive Date: 20190923
  Receipt Date: 20191120
  Transmission Date: 20200122
  Serious: Yes (Congenital Anomaly, Other)
  Sender: FDA-Public Use
  Company Number: DE-AUROBINDO-AUR-APL-2019-061418

PATIENT
  Age: 29 Year
  Sex: Female

DRUGS (5)
  1. VIMPAT [Suspect]
     Active Substance: LACOSAMIDE
     Indication: EPILEPSY
     Dosage: 200 MILLIGRAM, (100-0-100 MG)
     Route: 048
     Dates: start: 20100811
  2. FOLIC ACID. [Concomitant]
     Active Substance: FOLIC ACID
     Indication: PROPHYLAXIS OF NEURAL TUBE DEFECT
     Dosage: 5 MILLIGRAM, ONCE A DAY
     Route: 048
  3. LAMOTRIGINE. [Suspect]
     Active Substance: LAMOTRIGINE
     Indication: EPILEPSY
     Dosage: 700 MILLIGRAM, (225-225-250 MG)
     Route: 048
     Dates: start: 20091111
  4. LAMOTRIGINE. [Suspect]
     Active Substance: LAMOTRIGINE
     Dosage: 700 MILLIGRAM, (225-225-250 MG)
     Route: 048
     Dates: start: 20100811
  5. VIMPAT [Suspect]
     Active Substance: LACOSAMIDE
     Dosage: 200 MILLIGRAM, (100-0-100 MG)
     Route: 048
     Dates: start: 200911

REACTIONS (2)
  - Generalised tonic-clonic seizure [Unknown]
  - Maternal exposure during pregnancy [Unknown]

NARRATIVE: CASE EVENT DATE: 200911
